FAERS Safety Report 15319907 (Version 1)
Quarter: 2018Q4

REPORT INFORMATION
  Report Type: Report from Study
  Country: US (occurrence: US)
  Receive Date: 20180827
  Receipt Date: 20180827
  Transmission Date: 20190204
  Serious: Yes (Other)
  Sender: FDA-Public Use
  Company Number: US-ROCHE-2172267

PATIENT

DRUGS (2)
  1. MEDI3617 [Suspect]
     Active Substance: INVESTIGATIONAL PRODUCT
     Indication: NEOPLASM
     Route: 042
  2. BEVACIZUMAB. [Suspect]
     Active Substance: BEVACIZUMAB
     Indication: NEOPLASM
     Route: 042

REACTIONS (9)
  - Proteinuria [Unknown]
  - Neuropathy peripheral [Unknown]
  - Scrotal oedema [Unknown]
  - Oedema peripheral [Unknown]
  - Weight increased [Unknown]
  - Pancreatitis acute [Unknown]
  - Hypertension [Unknown]
  - Female genital tract fistula [Unknown]
  - Pleural effusion [Unknown]
